FAERS Safety Report 7218000-5 (Version None)
Quarter: 2011Q1

REPORT INFORMATION
  Report Type: 
  Country: None (occurrence: None)
  Receive Date: 20110110
  Receipt Date: 20060201
  Transmission Date: 20110831
  Serious: Yes (Death)
  Sender: FDA-Public Use
  Company Number: B0692684A

PATIENT
  Age: 67 Year
  Sex: Male

DRUGS (1)
  1. DILATREND [Suspect]
     Dosage: 25MG TWICE PER DAY
     Route: 065
     Dates: start: 19860101

REACTIONS (1)
  - DEATH [None]
